FAERS Safety Report 5211851-8 (Version None)
Quarter: 2007Q1

REPORT INFORMATION
  Report Type: 
  Country: None (occurrence: None)
  Receive Date: 20070118
  Receipt Date: 20070115
  Transmission Date: 20070707
  Serious: Yes (Death)
  Sender: FDA-Public Use
  Company Number: DE-AVENTIS-200710104DE

PATIENT
  Sex: Male

DRUGS (1)
  1. TAXOTERE [Suspect]
     Dosage: DOSE: NOT REPORTED

REACTIONS (1)
  - ALVEOLITIS [None]
